FAERS Safety Report 16155043 (Version 1)
Quarter: 2019Q2

REPORT INFORMATION
  Report Type: Report from Study
  Country: None (occurrence: US)
  Receive Date: 20190403
  Receipt Date: 20190403
  Transmission Date: 20190711
  Serious: Yes (Other)
  Sender: FDA-Public Use
  Company Number: US-ABBVIE-19K-163-2729561-00

PATIENT
  Age: 61 Year
  Sex: Female

DRUGS (1)
  1. HUMIRA [Suspect]
     Active Substance: ADALIMUMAB
     Indication: CROHN^S DISEASE
     Route: 058
     Dates: end: 2018

REACTIONS (6)
  - Chronic sinusitis [Recovered/Resolved]
  - Cystitis [Recovered/Resolved]
  - Impaired healing [Unknown]
  - Osteomyelitis [Recovered/Resolved]
  - Cystitis [Recovered/Resolved]
  - Morton^s neuralgia [Recovered/Resolved]

NARRATIVE: CASE EVENT DATE: 2018
